FAERS Safety Report 25902505 (Version 1)
Quarter: 2025Q4

REPORT INFORMATION
  Report Type: Report from Study
  Country: US (occurrence: US)
  Receive Date: 20251009
  Receipt Date: 20251009
  Transmission Date: 20260118
  Serious: Yes (Hospitalization, Other)
  Sender: ALEXION PHARMACEUTICALS
  Company Number: US-AstraZeneca-CH-00966963A

PATIENT
  Age: 63 Year
  Sex: Female

DRUGS (2)
  1. DAPAGLIFLOZIN [Suspect]
     Active Substance: DAPAGLIFLOZIN
     Dosage: DAILY
     Route: 065
  2. ZOLOFT [Concomitant]
     Active Substance: SERTRALINE HYDROCHLORIDE
     Dosage: UNK
     Route: 065

REACTIONS (7)
  - Myocardial infarction [Unknown]
  - Angina pectoris [Unknown]
  - Vulvovaginal mycotic infection [Unknown]
  - Product dose omission issue [Unknown]
  - Chest pain [Recovered/Resolved]
  - Peripheral swelling [Not Recovered/Not Resolved]
  - Fungal infection [Unknown]
